FAERS Safety Report 8890614 (Version 1)
Quarter: 2012Q4

REPORT INFORMATION
  Report Type: 
  Country: GB (occurrence: GB)
  Receive Date: 20121107
  Receipt Date: 20121107
  Transmission Date: 20130627
  Serious: Yes (Other)
  Sender: FDA-Public Use
  Company Number: US-UCBSA-070210

PATIENT
  Age: 36 Year
  Sex: Female

DRUGS (9)
  1. KEPPRA [Suspect]
     Indication: EPILEPSY
     Route: 042
  2. KEPPRA [Suspect]
     Indication: EPILEPSY
  3. ZOPICLONE [Concomitant]
  4. AMITRIPTYLINE [Concomitant]
  5. CYCLIZINE [Concomitant]
  6. HYOSCINE [Concomitant]
  7. PARACETAMOL [Concomitant]
  8. MORPHINE [Concomitant]
  9. BUPRENORPHINE [Concomitant]
     Route: 060

REACTIONS (1)
  - Small intestinal obstruction [Unknown]
